FAERS Safety Report 15011631 (Version 1)
Quarter: 2018Q2

REPORT INFORMATION
  Report Type: Spontaneous
  Country: US (occurrence: US)
  Receive Date: 20180529
  Receipt Date: 20180529
  Transmission Date: 20180711
  Serious: Yes (Hospitalization)
  Sender: FDA-Public Use
  Company Number: None

PATIENT
  Age: 45 Year
  Sex: Female
  Weight: 76.5 kg

DRUGS (1)
  1. TERBINAFINE HCL [Suspect]
     Active Substance: TERBINAFINE HYDROCHLORIDE
     Indication: TINEA INFECTION
     Route: 048
     Dates: start: 20180508, end: 20180517

REACTIONS (10)
  - Fungal infection [None]
  - Pain [None]
  - Insomnia [None]
  - Impaired work ability [None]
  - Rash [None]
  - Drug hypersensitivity [None]
  - Burning sensation [None]
  - Heart rate increased [None]
  - White blood cell count increased [None]
  - Fluid retention [None]

NARRATIVE: CASE EVENT DATE: 20180518
